FAERS Safety Report 6431322-0 (Version None)
Quarter: 2009Q4

REPORT INFORMATION
  Report Type: 
  Country: None (occurrence: None)
  Receive Date: 20091106
  Receipt Date: 20091027
  Transmission Date: 20100525
  Serious: Yes (Other)
  Sender: FDA-Public Use
  Company Number: SE-PFIZER INC-2009288787

PATIENT
  Sex: Male

DRUGS (1)
  1. CAVERJECT DUAL [Suspect]

REACTIONS (4)
  - BLOOD URINE PRESENT [None]
  - BURNING SENSATION [None]
  - INCORRECT ROUTE OF DRUG ADMINISTRATION [None]
  - URETHRAL PAIN [None]
